FAERS Safety Report 4971301-3 (Version None)
Quarter: 2006Q2

REPORT INFORMATION
  Report Type: 
  Country: None (occurrence: None)
  Receive Date: 20060413
  Receipt Date: 20050610
  Transmission Date: 20061013
  Serious: Yes (Death, Hospitalization)
  Sender: FDA-Public Use
  Company Number: US-MERCK-0506USA02001

PATIENT
  Age: 50 Year
  Sex: Male
  Weight: 85 kg

DRUGS (5)
  1. VIOXX [Suspect]
     Indication: ARTHRITIS
     Route: 048
     Dates: start: 20000901, end: 20001004
  2. VIOXX [Suspect]
     Route: 048
     Dates: start: 20000101, end: 20020527
  3. DIGOXIN [Concomitant]
     Route: 048
  4. SOTALOL HYDROCHLORIDE [Concomitant]
     Route: 048
  5. COUMADIN [Concomitant]
     Route: 065

REACTIONS (15)
  - ALLERGIC SINUSITIS [None]
  - ASTHENIA [None]
  - CARDIO-RESPIRATORY ARREST [None]
  - CHEST PAIN [None]
  - CHOLECYSTITIS CHRONIC [None]
  - CHOLELITHIASIS [None]
  - HANGNAIL [None]
  - HYPOAESTHESIA [None]
  - MUSCULOSKELETAL CHEST PAIN [None]
  - MYOCARDIAL INFARCTION [None]
  - PALPITATIONS [None]
  - PROTHROMBIN TIME PROLONGED [None]
  - TOOTH DISORDER [None]
  - TRICUSPID VALVE INCOMPETENCE [None]
  - UPPER RESPIRATORY TRACT INFECTION [None]
